FAERS Safety Report 19628530 (Version 2)
Quarter: 2021Q3

REPORT INFORMATION
  Report Type: Spontaneous
  Country: PL (occurrence: PL)
  Receive Date: 20210729
  Receipt Date: 20210922
  Transmission Date: 20211014
  Serious: Yes (Death, Other)
  Sender: FDA-Public Use
  Company Number: PL-BAXTER-2021BAX022354

PATIENT
  Age: 5 Year
  Sex: Female

DRUGS (10)
  1. HOLOXAN [Suspect]
     Active Substance: IFOSFAMIDE
     Indication: NEPHROBLASTOMA
  2. CISPLATIN. [Suspect]
     Active Substance: CISPLATIN
     Indication: NEPHROBLASTOMA
  3. ENDOXAN [Suspect]
     Active Substance: CYCLOPHOSPHAMIDE
     Indication: DISEASE RECURRENCE
     Dosage: .2 CYCLES, SECOND?LINE CHEMOTHERAPY
     Route: 065
  4. HOLOXAN [Suspect]
     Active Substance: IFOSFAMIDE
     Indication: DISEASE RECURRENCE
     Dosage: .2 CYCLES, SECOND?LINE CHEMOTHERAPY
     Route: 065
  5. CISPLATIN. [Suspect]
     Active Substance: CISPLATIN
     Indication: DISEASE RECURRENCE
     Dosage: 2 CYCLES, SECOND?LINE CHEMOTHERAPY
     Route: 065
  6. CARBOPLATIN. [Suspect]
     Active Substance: CARBOPLATIN
     Indication: NEPHROBLASTOMA
  7. ENDOXAN [Suspect]
     Active Substance: CYCLOPHOSPHAMIDE
     Indication: NEPHROBLASTOMA
  8. ETOPOSIDE. [Suspect]
     Active Substance: ETOPOSIDE
     Indication: DISEASE RECURRENCE
     Dosage: 2 CYCLES, SECOND?LINE CHEMOTHERAPY IN CCE REGIMEN
     Route: 065
  9. CARBOPLATIN. [Suspect]
     Active Substance: CARBOPLATIN
     Indication: DISEASE RECURRENCE
     Dosage: 2 CYCLES, SECOND LINE CHEMOTHERAPY
     Route: 065
  10. ETOPOSIDE. [Suspect]
     Active Substance: ETOPOSIDE
     Indication: NEPHROBLASTOMA
     Dosage: SECOND?LINE CHEMOTHERAPY IN ICE REGIMEN
     Route: 065

REACTIONS (6)
  - Condition aggravated [Unknown]
  - Fanconi syndrome [Fatal]
  - Bone marrow failure [Fatal]
  - Disease recurrence [Fatal]
  - Treatment failure [Fatal]
  - Renal tubular acidosis [Unknown]
